FAERS Safety Report 9583966 (Version 1)
Quarter: 2013Q4

REPORT INFORMATION
  Report Type: Spontaneous
  Country: US (occurrence: US)
  Receive Date: 20131002
  Receipt Date: 20131002
  Transmission Date: 20140711
  Serious: No
  Sender: FDA-Public Use
  Company Number: US-AMGEN-USASP2013051342

PATIENT
  Age: 53 Year
  Sex: Female
  Weight: 56.69 kg

DRUGS (10)
  1. ENBREL [Suspect]
     Indication: PRODUCT USED FOR UNKNOWN INDICATION
     Dosage: 50 MG, QWK
     Route: 058
  2. ESTRADIOL [Concomitant]
     Dosage: 0.025 MG, UNK
  3. XANAX [Concomitant]
     Dosage: 1 MG, UNK
  4. HYDROCHLOROTH [Concomitant]
     Dosage: 50 MG, UNK
  5. METHOTREXATE [Concomitant]
     Dosage: 2.5 MG, UNK
  6. VICODIN [Concomitant]
     Dosage: 5-300 MG, UNK
  7. FOLIC ACID [Concomitant]
     Dosage: 20 MG, UNK
  8. PRENA [Concomitant]
     Dosage: UNK
  9. BIOTIN [Concomitant]
     Dosage: UNK
  10. ZOLPIDEM [Concomitant]
     Dosage: 5 MG, UNK

REACTIONS (1)
  - Headache [Unknown]
